FAERS Safety Report 24707631 (Version 1)
Quarter: 2024Q4

REPORT INFORMATION
  Report Type: Spontaneous
  Country: US (occurrence: US)
  Receive Date: 20241206
  Receipt Date: 20241206
  Transmission Date: 20250115
  Serious: No
  Sender: NEUROCRINE BIOSCIENCES
  Company Number: US-NEUROCRINE BIOSCIENCES INC.-2024NBI12023

PATIENT

DRUGS (3)
  1. INGREZZA [Suspect]
     Active Substance: VALBENAZINE
     Indication: Tardive dyskinesia
     Dosage: UNK
     Route: 065
  2. BENZTROPINE [Concomitant]
     Active Substance: BENZTROPINE
  3. MODAFINIL [Concomitant]
     Active Substance: MODAFINIL

REACTIONS (1)
  - Extrapyramidal disorder [Unknown]
